FAERS Safety Report 5765642-X (Version None)
Quarter: 2008Q2

REPORT INFORMATION
  Report Type: 
  Country: None (occurrence: None)
  Receive Date: 20080611
  Receipt Date: 20080605
  Transmission Date: 20081010
  Serious: Yes (Other)
  Sender: FDA-Public Use
  Company Number: US-ALLERGAN-0805253US

PATIENT
  Sex: Female

DRUGS (1)
  1. PRED FORTE [Suspect]
     Indication: INFLAMMATION
     Dates: start: 20080424

REACTIONS (4)
  - CHEST DISCOMFORT [None]
  - EYE PAIN [None]
  - FLUSHING [None]
  - TOOTH DISORDER [None]
